FAERS Safety Report 10592568 (Version 2)
Quarter: 2014Q4

REPORT INFORMATION
  Report Type: Spontaneous
  Country: US (occurrence: US)
  Receive Date: 20141119
  Receipt Date: 20141124
  Transmission Date: 20150529
  Serious: No
  Sender: FDA-Public Use
  Company Number: US-PFIZER INC-2014317238

PATIENT
  Age: 71 Year
  Sex: Female

DRUGS (1)
  1. XELJANZ [Suspect]
     Active Substance: TOFACITINIB CITRATE
     Dosage: 5 MG, 2X/DAY
     Route: 048
     Dates: end: 20141115

REACTIONS (4)
  - Joint swelling [Unknown]
  - Drug ineffective [Unknown]
  - Urinary tract infection [Unknown]
  - Pollakiuria [Unknown]

NARRATIVE: CASE EVENT DATE: 20141020
